FAERS Safety Report 17995262 (Version 4)
Quarter: 2021Q1

REPORT INFORMATION
  Report Type: Spontaneous
  Country: US (occurrence: US)
  Receive Date: 20200708
  Receipt Date: 20210126
  Transmission Date: 20210419
  Serious: Yes (Other)
  Sender: FDA-Public Use
  Company Number: US-GILEAD-2020-0479630

PATIENT
  Age: 61 Year
  Sex: Male

DRUGS (1)
  1. TRUVADA [Suspect]
     Active Substance: EMTRICITABINE\TENOFOVIR DISOPROXIL FUMARATE
     Indication: PROPHYLAXIS AGAINST HIV INFECTION
     Dosage: UNK
     Route: 048
     Dates: start: 20160819, end: 20190907

REACTIONS (9)
  - Anhedonia [Unknown]
  - Fracture [Not Recovered/Not Resolved]
  - Tibia fracture [Recovered/Resolved]
  - Emotional distress [Unknown]
  - Anxiety [Unknown]
  - Tibia fracture [Recovered/Resolved]
  - Pain [Unknown]
  - Bone density decreased [Unknown]
  - Osteopenia [Not Recovered/Not Resolved]

NARRATIVE: CASE EVENT DATE: 20190410
